FAERS Safety Report 15995327 (Version 2)
Quarter: 2019Q2

REPORT INFORMATION
  Report Type: Spontaneous
  Country: CA (occurrence: CA)
  Receive Date: 20190222
  Receipt Date: 20190403
  Transmission Date: 20190711
  Serious: Yes (Hospitalization, Other)
  Sender: FDA-Public Use
  Company Number: CA-GLAXOSMITHKLINE-CA2019GSK032237

PATIENT
  Age: 73 Year
  Sex: Male

DRUGS (1)
  1. TRELEGY ELLIPTA [Suspect]
     Active Substance: FLUTICASONE FUROATE\UMECLIDINIUM BROMIDE\VILANTEROL TRIFENATATE
     Indication: CHRONIC OBSTRUCTIVE PULMONARY DISEASE
     Dosage: UNK UNK, QD
     Dates: start: 20181125

REACTIONS (8)
  - Abdominal pain upper [Unknown]
  - Odynophagia [Unknown]
  - Flatulence [Unknown]
  - Oropharyngeal pain [Unknown]
  - Oxygen therapy [Unknown]
  - Lung disorder [Unknown]
  - Gastrooesophageal reflux disease [Recovered/Resolved]
  - Pruritus [Recovered/Resolved]

NARRATIVE: CASE EVENT DATE: 20190201
